FAERS Safety Report 5989687-X (Version None)
Quarter: 2008Q4

REPORT INFORMATION
  Report Type: 
  Country: None (occurrence: None)
  Receive Date: 20081210
  Receipt Date: 20081208
  Transmission Date: 20090506
  Serious: Yes (Hospitalization)
  Sender: FDA-Public Use
  Company Number: US-ROXANE LABORATORIES, INC.-2008-RO-00376RO

PATIENT
  Sex: Male
  Weight: 141 kg

DRUGS (5)
  1. PREDNISONE TAB [Suspect]
     Indication: PROSTATE CANCER
     Dosage: 10MG
     Route: 048
     Dates: start: 20080321, end: 20080730
  2. PREDNISONE TAB [Suspect]
     Dosage: 10MG
     Route: 048
     Dates: start: 20080807
  3. SUNITINIB MALATE [Suspect]
     Indication: PROSTATE CANCER
     Dosage: 37.5MG
     Route: 048
     Dates: start: 20080321
  4. TAXOTERE [Suspect]
     Indication: PROSTATE CANCER
     Dosage: 200MG
     Route: 042
     Dates: start: 20070823
  5. LOVENOX [Suspect]
     Indication: DEEP VEIN THROMBOSIS
     Dosage: 300MG
     Route: 058
     Dates: start: 20080703

REACTIONS (1)
  - HAEMATOMA [None]
